FAERS Safety Report 24408429 (Version 1)
Quarter: 2024Q4

REPORT INFORMATION
  Report Type: Spontaneous
  Country: US (occurrence: US)
  Receive Date: 20241007
  Receipt Date: 20241007
  Transmission Date: 20250115
  Serious: No
  Sender: RARE DISEASE THERAPEUTICS
  Company Number: US-Rare Disease Therapeutics, Inc.-2162593

PATIENT
  Age: 66 Year

DRUGS (1)
  1. ANAVIP [Suspect]
     Active Substance: PIT VIPER (CROTALINAE) IMMUNE GLOBULIN ANTIVENIN (EQUINE)

REACTIONS (2)
  - Erythema [Unknown]
  - Oropharyngeal oedema [Unknown]
